FAERS Safety Report 7739293-1 (Version None)
Quarter: 2011Q3

REPORT INFORMATION
  Report Type: 
  Country: None (occurrence: None)
  Receive Date: 20110909
  Receipt Date: 20100824
  Transmission Date: 20111222
  Serious: No
  Sender: FDA-Public Use
  Company Number: US-BAYER-201031745NA

PATIENT
  Age: 25 Year
  Sex: Female

DRUGS (1)
  1. MIRENA [Suspect]
     Indication: CONTRACEPTION
     Dosage: CONTINUOUS
     Route: 015
     Dates: start: 20080101

REACTIONS (7)
  - AMENORRHOEA [None]
  - FATIGUE [None]
  - ACNE [None]
  - POST PROCEDURAL HAEMORRHAGE [None]
  - GENITAL HAEMORRHAGE [None]
  - HYPERPHAGIA [None]
  - POLLAKIURIA [None]
